FAERS Safety Report 7936558-5 (Version None)
Quarter: 2011Q4

REPORT INFORMATION
  Report Type: 
  Country: None (occurrence: None)
  Receive Date: 20111121
  Receipt Date: 20101124
  Transmission Date: 20120403
  Serious: Yes (Hospitalization)
  Sender: FDA-Public Use
  Company Number: 2010025668

PATIENT
  Age: 18 Year
  Sex: Female
  Weight: 63 kg

DRUGS (5)
  1. BERINERT [Suspect]
     Indication: HEREDITARY ANGIOEDEMA
     Dosage: SEE IMAGE
     Route: 042
     Dates: start: 20100728
  2. BERINERT [Suspect]
     Indication: HEREDITARY ANGIOEDEMA
     Dosage: SEE IMAGE
     Route: 042
     Dates: start: 20100727
  3. BERINERT [Suspect]
     Indication: HEREDITARY ANGIOEDEMA
     Dosage: SEE IMAGE
     Route: 042
     Dates: start: 20100727
  4. CINRYZE [Suspect]
     Indication: HEREDITARY ANGIOEDEMA
     Dates: start: 20100726
  5. CINRYZE [Suspect]
     Indication: HEREDITARY ANGIOEDEMA
     Dates: start: 20100726

REACTIONS (1)
  - DRUG INEFFECTIVE [None]
